FAERS Safety Report 8420588-3 (Version None)
Quarter: 2012Q2

REPORT INFORMATION
  Report Type: 
  Country: None (occurrence: None)
  Receive Date: 20120608
  Receipt Date: 20120530
  Transmission Date: 20120825
  Serious: No
  Sender: FDA-Public Use
  Company Number: US-BIOGENIDEC-2012BI019134

PATIENT
  Sex: Female

DRUGS (1)
  1. TYSABRI [Suspect]
     Indication: MULTIPLE SCLEROSIS
     Route: 042
     Dates: start: 20110714, end: 20111101

REACTIONS (5)
  - MEMORY IMPAIRMENT [None]
  - TREMOR [None]
  - ASTHENIA [None]
  - DYSARTHRIA [None]
  - MUSCULOSKELETAL DISORDER [None]
